FAERS Safety Report 6478009-6 (Version None)
Quarter: 2009Q4

REPORT INFORMATION
  Report Type: 
  Country: None (occurrence: None)
  Receive Date: 20091207
  Receipt Date: 20091201
  Transmission Date: 20100525
  Serious: Yes (Other)
  Sender: FDA-Public Use
  Company Number: B0610900A

PATIENT
  Age: 15 Year

DRUGS (1)
  1. SULTANOL [Suspect]
     Indication: DRUG USE FOR UNKNOWN INDICATION
     Route: 055

REACTIONS (2)
  - ANGINA PECTORIS [None]
  - CARDIAC DISCOMFORT [None]
